FAERS Safety Report 9515497 (Version 1)
Quarter: 2013Q2

REPORT INFORMATION
  Report Type: Spontaneous
  Country: US (occurrence: None)
  Receive Date: 20130305
  Receipt Date: 20130305
  Transmission Date: 20140414
  Serious: Yes (Other)
  Sender: FDA-Public Use
  Company Number: 163-21880-12020412

PATIENT
  Age: 44 Year
  Sex: Female

DRUGS (9)
  1. REVLIMID [Suspect]
     Indication: PLASMA CELL MYELOMA
     Dosage: 25 MG, 14 IN 21 D PO
     Route: 048
     Dates: start: 20110107
  2. LISINOPRIL(LISINOPRIL) [Concomitant]
  3. PAXIL(PAROXETINE HYDROCHLORIDE) [Concomitant]
  4. BABY ASPIRIN (ACETYLSALICYLIC ACID) [Concomitant]
  5. PEPCID(FAMOTIDINE) [Concomitant]
  6. CHLORPHENIRAMINE(CHLORPHENAMINE) [Concomitant]
  7. GABAPENTIN(GABAPENTIN) [Concomitant]
  8. TRAMADOL(TRAMADOL) [Concomitant]
  9. ZOMETA (ZOLEDRONIC ACID) [Concomitant]

REACTIONS (6)
  - Infection [None]
  - Nasopharyngitis [None]
  - Platelet disorder [None]
  - Hot flush [None]
  - Night sweats [None]
  - Rash [None]
